FAERS Safety Report 8860267 (Version 1)
Quarter: 2012Q4

REPORT INFORMATION
  Report Type: 
  Country: KR (occurrence: KR)
  Receive Date: 20121025
  Receipt Date: 20121025
  Transmission Date: 20130627
  Serious: Yes (Death)
  Sender: FDA-Public Use
  Company Number: PHHY2012KR094767

PATIENT
  Sex: Male

DRUGS (2)
  1. GLIVEC [Suspect]
     Indication: GASTROINTESTINAL STROMAL TUMOUR
     Dosage: 400 mg/ day
     Route: 048
     Dates: start: 20110329, end: 201110
  2. GLIVEC [Suspect]
     Dosage: 600 mg/ day
     Route: 048
     Dates: start: 201110, end: 201208

REACTIONS (1)
  - Death [Fatal]
